FAERS Safety Report 20336985 (Version 1)
Quarter: 2022Q1

REPORT INFORMATION
  Report Type: Spontaneous
  Country: US (occurrence: US)
  Receive Date: 20220114
  Receipt Date: 20220114
  Transmission Date: 20220423
  Serious: Yes (Life-Threatening, Hospitalization, Other)
  Sender: FDA-Public Use
  Company Number: US-HORIZON THERAPEUTICS-HZN-2022-000277

PATIENT

DRUGS (10)
  1. RAYOS [Suspect]
     Active Substance: PREDNISONE
     Indication: Immunosuppressant drug therapy
     Dosage: 40 MG, QD
     Route: 065
  2. RAYOS [Suspect]
     Active Substance: PREDNISONE
     Dosage: 20 MG, QD
     Route: 065
  3. RAYOS [Suspect]
     Active Substance: PREDNISONE
     Dosage: 7.5 MG, QD
     Route: 065
  4. MYCOPHENOLATE MOFETIL [Suspect]
     Active Substance: MYCOPHENOLATE MOFETIL
     Indication: Immunosuppressant drug therapy
  5. SIROLIMUS [Suspect]
     Active Substance: SIROLIMUS
     Indication: Immunosuppressant drug therapy
  6. TACROLIMUS [Suspect]
     Active Substance: TACROLIMUS
     Indication: Immunosuppressant drug therapy
  7. PEMBROLIZUMAB [Concomitant]
     Active Substance: PEMBROLIZUMAB
     Indication: Immunosuppressant drug therapy
  8. CARBOPLATIN [Concomitant]
     Active Substance: CARBOPLATIN
     Indication: Immunosuppressant drug therapy
  9. CETUXIMAB [Concomitant]
     Active Substance: CETUXIMAB
     Indication: Immunosuppressant drug therapy
  10. CEMIPLIMAB [Concomitant]
     Active Substance: CEMIPLIMAB
     Indication: Immunosuppressant drug therapy

REACTIONS (4)
  - Skin squamous cell carcinoma recurrent [Recovering/Resolving]
  - Squamous cell carcinoma of skin [Recovering/Resolving]
  - Metastases to liver [Recovering/Resolving]
  - Metastases to lung [Recovering/Resolving]
